FAERS Safety Report 5191083-2 (Version None)
Quarter: 2006Q4

REPORT INFORMATION
  Report Type: 
  Country: None (occurrence: None)
  Receive Date: 20061218
  Receipt Date: 20061218
  Transmission Date: 20070319
  Serious: Yes (Life-Threatening)
  Sender: FDA-Public Use
  Company Number: None

PATIENT
  Sex: Female
  Weight: 68.9467 kg

DRUGS (4)
  1. FORTEO [Suspect]
     Indication: OSTEOPOROSIS
     Dosage: 3 ML  DAILY  SQ
     Route: 058
     Dates: start: 20061013, end: 20061019
  2. LIPITOR [Concomitant]
  3. ESTRATEST [Concomitant]
  4. PROVERA [Concomitant]

REACTIONS (4)
  - HEART RATE INCREASED [None]
  - HYPERTENSION [None]
  - LABORATORY TEST ABNORMAL [None]
  - PALPITATIONS [None]
